FAERS Safety Report 8059286-7 (Version None)
Quarter: 2012Q1

REPORT INFORMATION
  Report Type: 
  Country: None (occurrence: None)
  Receive Date: 20120113
  Receipt Date: 20111227
  Transmission Date: 20120608
  Serious: Yes (Other)
  Sender: FDA-Public Use
  Company Number: LETR20110001

PATIENT
  Age: 59 Year
  Sex: Female
  Weight: 86.8 kg

DRUGS (2)
  1. METHADONE HCL [Suspect]
     Indication: DRUG LEVEL
     Dosage: 6 MG, INTRAVENOUS DAYS 1 AND 15
     Route: 042
  2. LETROZOLE [Suspect]
     Indication: DRUG LEVEL
     Dosage: 2.5 MG, 1 IN 1 D, ORAL DAYS 8-14
     Route: 048

REACTIONS (6)
  - RESPIRATORY DEPRESSION [None]
  - HEADACHE [None]
  - SOMNOLENCE [None]
  - NAUSEA [None]
  - HYPOTENSION [None]
  - OXYGEN SATURATION DECREASED [None]
